FAERS Safety Report 20792092 (Version 1)
Quarter: 2022Q2

REPORT INFORMATION
  Report Type: Spontaneous
  Country: US (occurrence: None)
  Receive Date: 20220505
  Receipt Date: 20220505
  Transmission Date: 20220721
  Serious: No
  Sender: FDA-Public Use
  Company Number: None

PATIENT
  Sex: Male

DRUGS (1)
  1. LENALIDOMIDE [Suspect]
     Active Substance: LENALIDOMIDE
     Indication: Plasma cell myeloma
     Dosage: FREQUENCY : DAILY;?TAKE 1 CAPSULE BY MOTH ONCE DAILY FOR 21 DAYS ON AND 7 DAYS OFF. YAKE WHOLE WITH
     Route: 048
     Dates: start: 202203

REACTIONS (1)
  - Full blood count decreased [None]
